FAERS Safety Report 9638369 (Version 2)
Quarter: 2014Q2

REPORT INFORMATION
  Report Type: Spontaneous
  Country: FR (occurrence: FR)
  Receive Date: 20131022
  Receipt Date: 20140522
  Transmission Date: 20141212
  Serious: Yes (Congenital Anomaly)
  Sender: FDA-Public Use
  Company Number: FR-GLAXOSMITHKLINE-B0930573A

PATIENT
  Sex: Male

DRUGS (2)
  1. LAMICTAL [Suspect]
     Indication: PRODUCT USED FOR UNKNOWN INDICATION
     Dosage: 50MG TWICE PER DAY
     Route: 064
  2. FOLIC ACID [Concomitant]
     Indication: SUPPLEMENTATION THERAPY
     Route: 064

REACTIONS (9)
  - Gastroschisis [Unknown]
  - Multiple congenital abnormalities [Unknown]
  - Congenital hiatus hernia [Unknown]
  - Macroglossia [Unknown]
  - Glossoptosis [Unknown]
  - Laryngomalacia [Unknown]
  - Congenital epiglottal anomaly [Unknown]
  - Unresponsive to stimuli [Unknown]
  - Foetal exposure during pregnancy [Unknown]
